FAERS Safety Report 21213022 (Version 1)
Quarter: 2022Q3

REPORT INFORMATION
  Report Type: Spontaneous
  Country: US (occurrence: US)
  Receive Date: 20220815
  Receipt Date: 20220815
  Transmission Date: 20221026
  Serious: No
  Sender: FDA-Public Use
  Company Number: US-GSKCCFUS-Case-01457794_AE-83505

PATIENT
  Sex: Female

DRUGS (1)
  1. ADVAIR DISKUS [Suspect]
     Active Substance: FLUTICASONE PROPIONATE\SALMETEROL XINAFOATE
     Indication: Product used for unknown indication
     Dosage: 100 MCG/MG, BID
     Route: 048
     Dates: start: 20191101, end: 20220728

REACTIONS (3)
  - Chest pain [Unknown]
  - Pain in extremity [Unknown]
  - Heart rate increased [Unknown]
